FAERS Safety Report 14912055 (Version 2)
Quarter: 2020Q3

REPORT INFORMATION
  Report Type: Spontaneous
  Country: US (occurrence: US)
  Receive Date: 20180518
  Receipt Date: 20200817
  Transmission Date: 20201102
  Serious: No
  Sender: FDA-Public Use
  Company Number: US-PFIZER INC-2018200818

PATIENT
  Age: 63 Year
  Sex: Female

DRUGS (1)
  1. IBRANCE [Suspect]
     Active Substance: PALBOCICLIB
     Indication: BREAST CANCER FEMALE
     Dosage: 100 MG, CYCLIC (ONCE A DAY) X 21 DAYS (EVERY) 28 DAYS)
     Dates: start: 20171222

REACTIONS (7)
  - Illness [Unknown]
  - Product dose omission issue [Unknown]
  - Mood swings [Unknown]
  - Pain [Unknown]
  - Hypoaesthesia [Unknown]
  - Nervousness [Unknown]
  - Paraesthesia [Unknown]
